FAERS Safety Report 21424913 (Version 3)
Quarter: 2022Q4

REPORT INFORMATION
  Report Type: Report from Study
  Country: ES (occurrence: ES)
  Receive Date: 20221008
  Receipt Date: 20221207
  Transmission Date: 20230113
  Serious: Yes (Other)
  Sender: FDA-Public Use
  Company Number: ES-BRISTOL-MYERS SQUIBB COMPANY-2022-117189

PATIENT
  Age: 75 Year
  Sex: Female
  Weight: 83 kg

DRUGS (3)
  1. VIDAZA [Suspect]
     Active Substance: AZACITIDINE
     Indication: Myelodysplastic syndrome
     Route: 065
  2. VENETOCLAX [Suspect]
     Active Substance: VENETOCLAX
     Indication: Acute myeloid leukaemia
     Dosage: 400
     Route: 048
     Dates: start: 202203
  3. VENETOCLAX [Suspect]
     Active Substance: VENETOCLAX
     Dosage: 100
     Route: 048
     Dates: start: 2022

REACTIONS (3)
  - Cytopenia [Not Recovered/Not Resolved]
  - Acute myeloid leukaemia [Unknown]
  - Blast cell count increased [Not Recovered/Not Resolved]

NARRATIVE: CASE EVENT DATE: 20220401
